FAERS Safety Report 14121613 (Version 1)
Quarter: 2017Q4

REPORT INFORMATION
  Report Type: Spontaneous
  Country: US (occurrence: US)
  Receive Date: 20171024
  Receipt Date: 20171024
  Transmission Date: 20180321
  Serious: No
  Sender: FDA-Public Use
  Company Number: US-MYLANLABS-2017M1063897

PATIENT
  Sex: Female

DRUGS (1)
  1. DICYCLOMINE HYDROCHLORIDE TABLETS, USP [Suspect]
     Active Substance: DICYCLOMINE HYDROCHLORIDE
     Indication: PRODUCT USED FOR UNKNOWN INDICATION
     Dosage: UNK UNK, QID

REACTIONS (2)
  - Abdominal pain lower [Unknown]
  - Back pain [Unknown]
